FAERS Safety Report 18729084 (Version 1)
Quarter: 2021Q1

REPORT INFORMATION
  Report Type: Spontaneous
  Country: US (occurrence: US)
  Receive Date: 20210111
  Receipt Date: 20210111
  Transmission Date: 20210419
  Serious: Yes (Hospitalization)
  Sender: FDA-Public Use
  Company Number: None

PATIENT
  Age: 91 Year
  Sex: Male

DRUGS (1)
  1. PROLIA [Suspect]
     Active Substance: DENOSUMAB
     Indication: OSTEOPOROSIS
     Dosage: ?          OTHER FREQUENCY:Q6MONTHS;?
     Route: 058
     Dates: start: 20191008

REACTIONS (2)
  - Therapy interrupted [None]
  - Hip fracture [None]

NARRATIVE: CASE EVENT DATE: 20200601
